FAERS Safety Report 7086146-0 (Version None)
Quarter: 2010Q4

REPORT INFORMATION
  Report Type: 
  Country: None (occurrence: None)
  Receive Date: 20101105
  Receipt Date: 20101101
  Transmission Date: 20110411
  Serious: Yes (Hospitalization)
  Sender: FDA-Public Use
  Company Number: NL-SANOFI-AVENTIS-D01200900100

PATIENT
  Age: 52 Year
  Sex: Female
  Weight: 84 kg

DRUGS (4)
  1. OMBRABULIN [Suspect]
     Dosage: UNIT DOSE: 35 MG/M2
     Route: 041
     Dates: start: 20081211, end: 20081211
  2. DOCETAXEL [Suspect]
     Dosage: UNIT DOSE: 75 MG/M2
     Route: 041
     Dates: start: 20081212, end: 20081212
  3. METFORMIN HCL [Concomitant]
     Route: 048
  4. PANTOPRAZOLE SODIUM [Concomitant]
     Route: 048

REACTIONS (8)
  - ABDOMINAL PAIN [None]
  - DECREASED APPETITE [None]
  - FATIGUE [None]
  - ILEUS [None]
  - INTESTINAL FISTULA [None]
  - MALIGNANT NEOPLASM PROGRESSION [None]
  - PYREXIA [None]
  - UTERINE LEIOMYOSARCOMA [None]
